FAERS Safety Report 4267233-9 (Version None)
Quarter: 2004Q1

REPORT INFORMATION
  Report Type: 
  Country: None (occurrence: None)
  Receive Date: 20040108
  Receipt Date: 20040108
  Transmission Date: 20041129
  Serious: Yes (Hospitalization)
  Sender: FDA-Public Use
  Company Number: None

PATIENT
  Age: 63 Year
  Sex: Female

DRUGS (2)
  1. THALIDOMIDE (NSC#  66847) [Suspect]
     Indication: METASTASES TO CENTRAL NERVOUS SYSTEM
     Dosage: 200 MG PO STARTED AT 9/24/03
     Route: 048
     Dates: start: 20030924
  2. THALIDOMIDE (NSC#  66847) [Suspect]
     Indication: METASTASES TO CENTRAL NERVOUS SYSTEM
     Dosage: 200 MG PO STARTED AT 9/24/03
     Route: 048
     Dates: start: 20031006

REACTIONS (7)
  - BLOOD PRESSURE DIASTOLIC DECREASED [None]
  - BODY TEMPERATURE DECREASED [None]
  - DIARRHOEA [None]
  - FAECES DISCOLOURED [None]
  - HAEMATOCHEZIA [None]
  - MUSCLE CRAMP [None]
  - RESPIRATORY RATE INCREASED [None]
